FAERS Safety Report 9180144 (Version 1)
Quarter: 2012Q4

REPORT INFORMATION
  Report Type: 
  Country: US (occurrence: US)
  Receive Date: 20121029
  Receipt Date: 20121029
  Transmission Date: 20130627
  Serious: Yes (Other)
  Sender: FDA-Public Use
  Company Number: US-PFIZER INC-2012269372

PATIENT
  Sex: Female

DRUGS (1)
  1. EFFEXOR XR [Suspect]
     Dosage: 300 mg, 1x/day

REACTIONS (3)
  - Withdrawal syndrome [Unknown]
  - Drug dependence [Unknown]
  - Malaise [Unknown]
